FAERS Safety Report 7439182-6 (Version None)
Quarter: 2011Q2

REPORT INFORMATION
  Report Type: 
  Country: None (occurrence: None)
  Receive Date: 20110427
  Receipt Date: 20110415
  Transmission Date: 20111010
  Serious: Yes (Hospitalization, Other)
  Sender: FDA-Public Use
  Company Number: US-JNJFOC-20100501453

PATIENT
  Sex: Female
  Weight: 93.44 kg

DRUGS (9)
  1. VIVELLE [Concomitant]
  2. CYCLOSPORINE [Concomitant]
     Indication: PRODUCT USED FOR UNKNOWN INDICATION
  3. STELARA [Suspect]
     Route: 058
  4. ETANERCEPT [Suspect]
     Indication: ILL-DEFINED DISORDER
  5. LEXAPRO [Concomitant]
  6. VOLTAREN [Concomitant]
     Indication: PAIN
  7. STELARA [Suspect]
     Indication: PSORIASIS
     Route: 058
  8. HUMIRA [Suspect]
     Indication: PSORIASIS
     Route: 058
  9. PRILOSEC [Concomitant]

REACTIONS (3)
  - DEMYELINATION [None]
  - DEPRESSION [None]
  - ANXIETY [None]
